FAERS Safety Report 8547980-0 (Version None)
Quarter: 2012Q3

REPORT INFORMATION
  Report Type: 
  Country: None (occurrence: None)
  Receive Date: 20120729
  Receipt Date: 20120718
  Transmission Date: 20120928
  Serious: Yes (Hospitalization, Other)
  Sender: FDA-Public Use
  Company Number: US-009507513-1001USA00052

PATIENT

DRUGS (4)
  1. FOSAMAX PLUS D [Suspect]
     Indication: OSTEOPOROSIS
     Dosage: 70 MG/2800
     Route: 048
     Dates: start: 20050501, end: 20090225
  2. FOSAMAX [Suspect]
     Indication: OSTEOPENIA
     Dosage: 70 MG, QW
     Route: 048
     Dates: start: 20080206, end: 20091010
  3. FOSAMAX [Suspect]
     Indication: OSTEOPOROSIS
     Dosage: 10 MG, QD
     Route: 048
     Dates: start: 19980101, end: 20050401
  4. FOSAMAX PLUS D [Suspect]
     Indication: OSTEOPENIA

REACTIONS (42)
  - CORONARY ARTERY DISEASE [None]
  - LOW TURNOVER OSTEOPATHY [None]
  - BENIGN NEOPLASM OF THYROID GLAND [None]
  - FATIGUE [None]
  - PUBIS FRACTURE [None]
  - PSEUDARTHROSIS [None]
  - INTERVERTEBRAL DISC DEGENERATION [None]
  - ONYCHOMYCOSIS [None]
  - CARDIAC STRESS TEST ABNORMAL [None]
  - PAIN IN EXTREMITY [None]
  - ARTHRALGIA [None]
  - RECTOCELE [None]
  - STRESS URINARY INCONTINENCE [None]
  - CYSTOCELE [None]
  - FEMUR FRACTURE [None]
  - FALL [None]
  - MUSCULAR WEAKNESS [None]
  - OPEN WOUND [None]
  - HYPERGLYCAEMIA [None]
  - BACK PAIN [None]
  - CATHETERISATION CARDIAC [None]
  - HYPOKALAEMIA [None]
  - LIMB INJURY [None]
  - JOINT STIFFNESS [None]
  - ANXIETY [None]
  - GASTROOESOPHAGEAL REFLUX DISEASE [None]
  - MUSCLE SPASMS [None]
  - NAUSEA [None]
  - ARTHROPATHY [None]
  - LACERATION [None]
  - ABDOMINAL PAIN LOWER [None]
  - FRACTURE DELAYED UNION [None]
  - HYPERTENSION [None]
  - DYSLIPIDAEMIA [None]
  - URINARY TRACT INFECTION [None]
  - INTERVERTEBRAL DISC PROTRUSION [None]
  - VOMITING [None]
  - BLOOD GLUCOSE INCREASED [None]
  - SCIATICA [None]
  - OSTEOARTHRITIS [None]
  - GOITRE [None]
  - DIARRHOEA [None]
